FAERS Safety Report 16120694 (Version 1)
Quarter: 2019Q1

REPORT INFORMATION
  Report Type: Report from Study
  Country: BR (occurrence: BR)
  Receive Date: 20190327
  Receipt Date: 20190327
  Transmission Date: 20190418
  Serious: No
  Sender: FDA-Public Use
  Company Number: BR-ROCHE-781686

PATIENT
  Age: 53 Year
  Sex: Female
  Weight: 58.4 kg

DRUGS (6)
  1. TRASTUZUMAB. [Suspect]
     Active Substance: TRASTUZUMAB
     Route: 042
  2. PERTUZUMAB. [Suspect]
     Active Substance: PERTUZUMAB
     Indication: HER-2 POSITIVE BREAST CANCER
     Dosage: LAST DOSE PRIOR TO SAE ON 22 APRIL 2010.
     Route: 042
     Dates: start: 20090902, end: 20100511
  3. DOCETAXEL. [Suspect]
     Active Substance: DOCETAXEL
     Route: 042
  4. PERTUZUMAB. [Suspect]
     Active Substance: PERTUZUMAB
     Dosage: MAINTAINENCE DOSE
     Route: 042
  5. DOCETAXEL. [Suspect]
     Active Substance: DOCETAXEL
     Indication: HER-2 POSITIVE BREAST CANCER
     Dosage: LAST DOSE PRIOR TO SAE ON 22 APRIL 2010.
     Route: 042
     Dates: start: 20090903, end: 20100511
  6. TRASTUZUMAB. [Suspect]
     Active Substance: TRASTUZUMAB
     Indication: HER-2 POSITIVE BREAST CANCER
     Dosage: LAST DOSE PRIOR TO SAE ON 22 APRIL 2010.
     Route: 042
     Dates: start: 20090903, end: 20100511

REACTIONS (1)
  - Left ventricular dysfunction [Recovered/Resolved]

NARRATIVE: CASE EVENT DATE: 20100510
